FAERS Safety Report 9238966 (Version 1)
Quarter: 2013Q2

REPORT INFORMATION
  Report Type: Report from Study
  Country: US (occurrence: US)
  Receive Date: 20130418
  Receipt Date: 20130418
  Transmission Date: 20140414
  Serious: No
  Sender: FDA-Public Use
  Company Number: US-VERTEX PHARMACEUTICALS INC.-2013-004902

PATIENT
  Age: 51 Year
  Sex: Female
  Weight: 55 kg

DRUGS (7)
  1. VX-950 (TELAPREVIR) [Suspect]
     Indication: HEPATITIS C
     Dosage: 750 MG, TID
     Route: 048
  2. RIBAPAK [Suspect]
     Indication: HEPATITIS C
     Dosage: 800 MG, QD
  3. PEGASYS [Suspect]
     Indication: HEPATITIS C
     Dosage: 180 ?G, UNK
  4. ARMOUR THYROID [Concomitant]
     Dosage: 120 MG, UNK
  5. SYNTHROID [Concomitant]
     Dosage: 100 ?G, UNK
  6. BUPROPION [Concomitant]
     Dosage: 150 MG, UNK
  7. PROBIOTIC                          /06395501/ [Concomitant]

REACTIONS (11)
  - Influenza like illness [Unknown]
  - Pyrexia [Unknown]
  - Chills [Unknown]
  - Temperature intolerance [Unknown]
  - Scab [Recovered/Resolved]
  - Sluggishness [Unknown]
  - Fatigue [Unknown]
  - Rash [Recovered/Resolved]
  - Anaemia [Unknown]
  - Dysgeusia [Unknown]
  - Nausea [Unknown]
